FAERS Safety Report 8914401 (Version 1)
Quarter: 2012Q4

REPORT INFORMATION
  Report Type: 
  Country: JP (occurrence: JP)
  Receive Date: 20121118
  Receipt Date: 20121118
  Transmission Date: 20130627
  Serious: Yes (Other)
  Sender: FDA-Public Use
  Company Number: JP-MYLANLABS-2012S1022966

PATIENT
  Age: 54 Year
  Sex: Female

DRUGS (6)
  1. FLUDARABINE [Suspect]
     Indication: MULTIPLE MYELOMA
     Dosage: 25 mg/m2/day for 5 days
     Route: 065
  2. MELPHALAN [Suspect]
     Indication: MULTIPLE MYELOMA
     Dosage: 50 mg/m2/day for 2 days
     Route: 065
  3. TACROLIMUS [Concomitant]
     Indication: PROPHYLAXIS AGAINST GRAFT VERSUS HOST DISEASE
     Route: 065
  4. METHOTREXATE [Concomitant]
     Indication: PROPHYLAXIS AGAINST GRAFT VERSUS HOST DISEASE
     Route: 065
  5. ACICLOVIR [Concomitant]
     Indication: HERPES SIMPLEX
     Dosage: 1000mg
     Route: 048
  6. MESNA [Concomitant]
     Indication: CYSTITIS HAEMORRHAGIC
     Route: 065

REACTIONS (1)
  - Cystitis haemorrhagic [Not Recovered/Not Resolved]
